FAERS Safety Report 19604668 (Version 1)
Quarter: 2021Q3

REPORT INFORMATION
  Report Type: Spontaneous
  Country: JP (occurrence: JP)
  Receive Date: 20210723
  Receipt Date: 20210723
  Transmission Date: 20211014
  Serious: Yes (Death, Hospitalization, Other)
  Sender: FDA-Public Use
  Company Number: JP-MSNLABS-2021MSNLIT00259

PATIENT

DRUGS (5)
  1. PACLITAXEL INJECTION 300 MG/50 ML [Suspect]
     Active Substance: PACLITAXEL
     Indication: PRODUCT USED FOR UNKNOWN INDICATION
     Route: 065
  2. CARBOPLATIN. [Suspect]
     Active Substance: CARBOPLATIN
     Indication: PRODUCT USED FOR UNKNOWN INDICATION
     Route: 065
  3. BEVACIZUMAB. [Suspect]
     Active Substance: BEVACIZUMAB
     Indication: PRODUCT USED FOR UNKNOWN INDICATION
     Route: 065
  4. PEMBROLIZUMAB. [Suspect]
     Active Substance: PEMBROLIZUMAB
     Indication: PRODUCT USED FOR UNKNOWN INDICATION
     Dosage: 200 MG/ BODYWEIGHT, EVERY THREE WEEKS
     Route: 065
  5. NAPROXEN. [Suspect]
     Active Substance: NAPROXEN
     Indication: PYREXIA
     Route: 065

REACTIONS (4)
  - Death [Fatal]
  - Disease progression [Unknown]
  - Condition aggravated [Unknown]
  - Drug ineffective [Unknown]
